FAERS Safety Report 7540203-0 (Version None)
Quarter: 2011Q2

REPORT INFORMATION
  Report Type: 
  Country: None (occurrence: None)
  Receive Date: 20110610
  Receipt Date: 20110527
  Transmission Date: 20111010
  Serious: Yes (Other)
  Sender: FDA-Public Use
  Company Number: US-SANOFI-AVENTIS-2011SA023084

PATIENT
  Age: 24 Year
  Sex: Female

DRUGS (4)
  1. LANTUS [Suspect]
     Indication: TYPE 1 DIABETES MELLITUS
     Dosage: 35-40 UNITS IN THE MORNING
     Route: 058
     Dates: start: 20110331
  2. LANTUS [Suspect]
     Dosage: 35-40 UNITS IN THE MORNING
     Route: 058
     Dates: start: 20110331
  3. SOLOSTAR [Suspect]
     Indication: TYPE 1 DIABETES MELLITUS
     Dates: start: 20110331, end: 20110401
  4. SOLOSTAR [Suspect]
     Dates: start: 20110402

REACTIONS (3)
  - DEVICE MALFUNCTION [None]
  - NASOPHARYNGITIS [None]
  - BLOOD GLUCOSE INCREASED [None]
